FAERS Safety Report 10925224 (Version 2)
Quarter: 2015Q1

REPORT INFORMATION
  Report Type: Spontaneous
  Country: JP (occurrence: JP)
  Receive Date: 20150318
  Receipt Date: 20150328
  Transmission Date: 20150721
  Serious: Yes (Hospitalization, Other)
  Sender: FDA-Public Use
  Company Number: JP-009507513-1503JPN007031

PATIENT
  Age: 7 Decade
  Sex: Female

DRUGS (11)
  1. LEVOFLOXACIN. [Concomitant]
     Active Substance: LEVOFLOXACIN
     Dosage: UNKNOWN
  2. FOSAMAX [Suspect]
     Active Substance: ALENDRONATE SODIUM
     Indication: OSTEOPOROSIS
     Dosage: 35 MG ONCE A WEEK
     Route: 048
     Dates: start: 20130426, end: 201502
  3. LORCAM [Concomitant]
     Active Substance: LORNOXICAM
     Dosage: UNKNOWN
     Route: 065
  4. ADETPHOS [Concomitant]
     Active Substance: ADENOSINE TRIPHOSPHATE
     Dosage: UNKNOWN
  5. METHYCOBAL [Concomitant]
     Active Substance: METHYLCOBALAMIN
     Dosage: UNKNOWN
  6. TAKEPRON [Concomitant]
     Active Substance: LANSOPRAZOLE
     Dosage: UNKNOWN
     Route: 065
  7. MYONAL [Concomitant]
     Active Substance: EPERISONE HYDROCHLORIDE
     Dosage: UNKNOWN
     Route: 065
  8. ONEALFA [Concomitant]
     Active Substance: ALFACALCIDOL
     Indication: OSTEOPOROSIS
     Dosage: FORMULATION: POR; 0.5 MG, QD
     Route: 048
     Dates: start: 20130426
  9. SARUTU [Concomitant]
     Dosage: UNKNOWN
  10. CALFINA [Concomitant]
     Active Substance: ALFACALCIDOL
     Dosage: UNKNOWN
  11. BRECRUS [Concomitant]
     Dosage: UNKNOWN

REACTIONS (3)
  - Cystitis [Unknown]
  - Cholangitis acute [Recovered/Resolved]
  - Hepatic function abnormal [Recovered/Resolved]

NARRATIVE: CASE EVENT DATE: 20150218
